FAERS Safety Report 12388051 (Version 1)
Quarter: 2016Q2

REPORT INFORMATION
  Report Type: Spontaneous
  Country: US (occurrence: None)
  Receive Date: 20160519
  Receipt Date: 20160519
  Transmission Date: 20160815
  Serious: Yes (Life-Threatening, Hospitalization, Disabling)
  Sender: FDA-Public Use
  Company Number: None

PATIENT
  Age: 43 Year
  Sex: Female
  Weight: 72.58 kg

DRUGS (9)
  1. ASA [Concomitant]
     Active Substance: ASPIRIN
  2. IMITREX [Suspect]
     Active Substance: SUMATRIPTAN SUCCINATE
     Indication: MIGRAINE
     Dosage: ONE TIME DOSE, INTO THE MUSCLE
     Route: 030
     Dates: start: 20160426, end: 20160426
  3. SOMA [Concomitant]
     Active Substance: CARISOPRODOL
  4. PREVACID [Concomitant]
     Active Substance: LANSOPRAZOLE
  5. MOTRIN [Concomitant]
     Active Substance: IBUPROFEN
  6. IMITREX [Suspect]
     Active Substance: SUMATRIPTAN SUCCINATE
     Indication: HEADACHE
     Dosage: ONE TIME DOSE, INTO THE MUSCLE
     Route: 030
     Dates: start: 20160426, end: 20160426
  7. TRAMADOL. [Concomitant]
     Active Substance: TRAMADOL
  8. TYLENOL [Concomitant]
     Active Substance: ACETAMINOPHEN
  9. EXCEDRIN [Concomitant]
     Active Substance: ACETAMINOPHEN\ASPIRIN\CAFFEINE

REACTIONS (2)
  - Headache [None]
  - Hypersensitivity [None]

NARRATIVE: CASE EVENT DATE: 20160426
